FAERS Safety Report 20050283 (Version 3)
Quarter: 2021Q4

REPORT INFORMATION
  Report Type: Report from Study
  Country: CN (occurrence: CN)
  Receive Date: 20211109
  Receipt Date: 20211201
  Transmission Date: 20220303
  Serious: Yes (Hospitalization)
  Sender: FDA-Public Use
  Company Number: CN-PFIZER INC-202101479585

PATIENT
  Age: 71 Year
  Sex: Female
  Weight: 62 kg

DRUGS (8)
  1. TALAZOPARIB [Suspect]
     Active Substance: TALAZOPARIB
     Indication: Neoplasm
     Dosage: 1 MG, SINGLE, RUN-IN PERIOD D-9 GIVEN AS A SINGLE DOSE
     Route: 048
     Dates: start: 20210114, end: 20210114
  2. TALAZOPARIB [Suspect]
     Active Substance: TALAZOPARIB
     Dosage: 1 MG, 1X/DAY, CYCLE 1
     Route: 048
     Dates: start: 20210123, end: 20210219
  3. TALAZOPARIB [Suspect]
     Active Substance: TALAZOPARIB
     Dosage: 1 MG, 1X/DAY, CYCLE 2
     Route: 048
     Dates: start: 20210220, end: 20210317
  4. TALAZOPARIB [Suspect]
     Active Substance: TALAZOPARIB
     Dosage: 1 MG, 1X/DAY, CYCLE 3
     Route: 048
     Dates: start: 20210318, end: 20210414
  5. TALAZOPARIB [Suspect]
     Active Substance: TALAZOPARIB
     Dosage: 1 MG, 1X/DAY, CYCLE 4
     Route: 048
     Dates: start: 20210415, end: 20210512
  6. TALAZOPARIB [Suspect]
     Active Substance: TALAZOPARIB
     Dosage: 1 MG, 1X/DAY, CYCLE 5
     Route: 048
     Dates: start: 20210513, end: 20210609
  7. TALAZOPARIB [Suspect]
     Active Substance: TALAZOPARIB
     Dosage: 1 MG, 1X/DAY, CYCLE 6
     Route: 048
     Dates: start: 20210610, end: 20210704
  8. TALAZOPARIB [Suspect]
     Active Substance: TALAZOPARIB
     Dosage: 0.75 MG, 1X/DAY, CYCLE 7
     Route: 048
     Dates: start: 20210928, end: 20211027

REACTIONS (1)
  - Pyrexia [Recovered/Resolved]

NARRATIVE: CASE EVENT DATE: 20211018
